FAERS Safety Report 6038008 (Version 14)
Quarter: 2014Q4

REPORT INFORMATION
  Report Type: Spontaneous
  Country: US (occurrence: US)
  Receive Date: 20060504
  Receipt Date: 20141111
  Transmission Date: 20150529
  Serious: Yes (Hospitalization, Other)
  Sender: FDA-Public Use
  Company Number: US-ROCHE-445368

PATIENT
  Age: 19 Year
  Sex: Male
  Weight: 90.7 kg

DRUGS (6)
  1. QUESTRAN [Concomitant]
     Active Substance: CHOLESTYRAMINE
     Indication: DIARRHOEA
     Route: 065
     Dates: start: 19940222, end: 199404
  2. DIPENTUM [Concomitant]
     Active Substance: OLSALAZINE SODIUM
     Route: 065
  3. ACCUTANE [Suspect]
     Active Substance: ISOTRETINOIN
     Dosage: DOSAGE REGIMEN REPORTED AS: VARIED
     Route: 048
     Dates: start: 19940117, end: 19940601
  4. ACCUTANE [Suspect]
     Active Substance: ISOTRETINOIN
     Indication: ACNE CYSTIC
     Route: 048
     Dates: start: 19860414, end: 198701
  5. PREDNISONE. [Concomitant]
     Active Substance: PREDNISONE
     Route: 048
     Dates: start: 19940307, end: 19940311
  6. PREDNISONE. [Concomitant]
     Active Substance: PREDNISONE
     Indication: ACNE CYSTIC
     Route: 048

REACTIONS (18)
  - Osteoarthritis [Unknown]
  - Cystitis haemorrhagic [Unknown]
  - Osteoporosis [Unknown]
  - Colitis [Unknown]
  - Crohn^s disease [Unknown]
  - Fibrous histiocytoma [Unknown]
  - Depression [Unknown]
  - Meniscus injury [Unknown]
  - Cholangitis sclerosing [Recovered/Resolved]
  - Acquired syringomyelia [Not Recovered/Not Resolved]
  - Acne [Unknown]
  - Haemangioma [Unknown]
  - Androgen deficiency [Not Recovered/Not Resolved]
  - Inflammatory bowel disease [Unknown]
  - Irritable bowel syndrome [Unknown]
  - Duodenal stenosis [Unknown]
  - Dry skin [Unknown]
  - Papilloma [Unknown]

NARRATIVE: CASE EVENT DATE: 198608
